FAERS Safety Report 8555043 (Version 2)
Quarter: 2012Q4

REPORT INFORMATION
  Report Type: Spontaneous
  Country: GB (occurrence: None)
  Receive Date: 20120503
  Receipt Date: 20120824
  Transmission Date: 20130627
  Serious: Yes (Hospitalization, Other)
  Sender: FDA-Public Use
  Company Number: GB-024150

PATIENT
  Age: 72 Year
  Sex: Male

DRUGS (5)
  1. CHLORAMBUCIL [Suspect]
     Indication: CHRONIC LYMPHOCYTIC LEUKAEMIA
     Dosage: 10 MG/M2 ORAL
     Route: 048
     Dates: start: 20110303
  2. TAZOCIN [Concomitant]
  3. GENTAMICIN SULPHATE [Concomitant]
  4. CLARITHROMYCIN [Concomitant]
  5. CO AMOXICLAV [Concomitant]

REACTIONS (1)
  - Pneumonia [None]
